FAERS Safety Report 12897581 (Version 2)
Quarter: 2016Q4

REPORT INFORMATION
  Report Type: Spontaneous
  Country: GB (occurrence: GB)
  Receive Date: 20161031
  Receipt Date: 20161114
  Transmission Date: 20170207
  Serious: Yes (Disabling)
  Sender: FDA-Public Use
  Company Number: GB-GALDERMA-GB16007192

PATIENT
  Age: 85 Year
  Sex: Female
  Weight: 64 kg

DRUGS (10)
  1. INDAPAMIDE. [Concomitant]
     Active Substance: INDAPAMIDE
     Indication: PRODUCT USED FOR UNKNOWN INDICATION
     Dates: start: 20160606, end: 20160901
  2. AMLODIPINE [Concomitant]
     Active Substance: AMLODIPINE BESYLATE
     Indication: PRODUCT USED FOR UNKNOWN INDICATION
     Dates: start: 20160613, end: 20160901
  3. OLMESARTAN MEDOXOMIL. [Concomitant]
     Active Substance: OLMESARTAN MEDOXOMIL
     Indication: PRODUCT USED FOR UNKNOWN INDICATION
     Dates: start: 20160510
  4. CEFALEXIN [Concomitant]
     Active Substance: CEPHALEXIN
     Indication: PRODUCT USED FOR UNKNOWN INDICATION
     Dates: start: 20160823, end: 20160830
  5. COCODAMOL [Concomitant]
     Active Substance: ACETAMINOPHEN\CODEINE PHOSPHATE
     Indication: PRODUCT USED FOR UNKNOWN INDICATION
     Route: 048
     Dates: start: 20160924
  6. ESTRIOL [Concomitant]
     Active Substance: ESTRIOL
     Indication: PRODUCT USED FOR UNKNOWN INDICATION
     Dates: start: 20160427, end: 20160901
  7. TRIMETHOPRIM. [Concomitant]
     Active Substance: TRIMETHOPRIM
     Indication: PRODUCT USED FOR UNKNOWN INDICATION
     Dates: start: 20160908, end: 20160915
  8. DOXYCYCLINE. [Suspect]
     Active Substance: DOXYCYCLINE
     Indication: PRODUCT USED FOR UNKNOWN INDICATION
     Dates: start: 20161007
  9. BETAMETHASONE VALERATE. [Concomitant]
     Active Substance: BETAMETHASONE VALERATE
     Indication: PRODUCT USED FOR UNKNOWN INDICATION
     Dates: start: 20161007
  10. CALAMINE [Concomitant]
     Active Substance: CALAMINE\FERRIC OXIDE RED\ZINC OXIDE
     Indication: PRODUCT USED FOR UNKNOWN INDICATION
     Dosage: AS NECESSARY
     Dates: start: 20161007

REACTIONS (1)
  - Dermatitis allergic [Not Recovered/Not Resolved]

NARRATIVE: CASE EVENT DATE: 20161007
